FAERS Safety Report 6750904-X (Version None)
Quarter: 2010Q2

REPORT INFORMATION
  Report Type: 
  Country: None (occurrence: None)
  Receive Date: 20100602
  Receipt Date: 20100519
  Transmission Date: 20101027
  Serious: Yes (Other)
  Sender: FDA-Public Use
  Company Number: PHHY2010US32843

PATIENT
  Sex: Female

DRUGS (6)
  1. RECLAST [Suspect]
     Dosage: UNK
     Route: 042
     Dates: start: 20100517
  2. VICODIN [Suspect]
  3. MIACALCIN [Suspect]
  4. VITAMINS [Concomitant]
  5. LUNESTA [Concomitant]
  6. AZELASTINE HCL [Concomitant]

REACTIONS (8)
  - ARTHRALGIA [None]
  - CARDIAC DISORDER [None]
  - CHEST PAIN [None]
  - CONVULSION [None]
  - HYPOPHOSPHATAEMIA [None]
  - MUSCULOSKELETAL PAIN [None]
  - MYALGIA [None]
  - PAIN [None]
